FAERS Safety Report 23365888 (Version 3)
Quarter: 2024Q1

REPORT INFORMATION
  Report Type: Spontaneous
  Country: US (occurrence: US)
  Receive Date: 20240104
  Receipt Date: 20240311
  Transmission Date: 20240410
  Serious: No
  Sender: FDA-Public Use
  Company Number: US-PFIZER INC-202300444134

PATIENT
  Age: 13 Year
  Sex: Male
  Weight: 42.64 kg

DRUGS (2)
  1. GENOTROPIN [Suspect]
     Active Substance: SOMATROPIN
     Indication: Pituitary tumour
     Dosage: 1.8 MG, DAILY
     Route: 058
     Dates: start: 202309
  2. GENOTROPIN [Suspect]
     Active Substance: SOMATROPIN
     Indication: Hormone level abnormal

REACTIONS (8)
  - Off label use [Unknown]
  - Wrong technique in device usage process [Unknown]
  - Drug administered in wrong device [Unknown]
  - Poor quality device used [Unknown]
  - Device defective [Unknown]
  - Device leakage [Unknown]
  - Device delivery system issue [Unknown]
  - Device issue [Unknown]

NARRATIVE: CASE EVENT DATE: 20230901
